FAERS Safety Report 21202242 (Version 1)
Quarter: 2022Q3

REPORT INFORMATION
  Report Type: Spontaneous
  Country: IT (occurrence: IT)
  Receive Date: 20220811
  Receipt Date: 20220811
  Transmission Date: 20221026
  Serious: Yes (Other)
  Sender: FDA-Public Use
  Company Number: IT-SUN PHARMACEUTICAL INDUSTRIES LTD-2022RR-348743

PATIENT
  Age: 64 Year
  Sex: Male

DRUGS (2)
  1. TILDRAKIZUMAB [Suspect]
     Active Substance: TILDRAKIZUMAB
     Indication: Product used for unknown indication
     Dosage: 100 MILLIGRAM, FIRST DOSE
     Route: 065
     Dates: start: 20220319, end: 20220319
  2. TILDRAKIZUMAB [Suspect]
     Active Substance: TILDRAKIZUMAB
     Dosage: 100 MILLIGRAM, SECOND DOSE
     Route: 065
     Dates: start: 20220419, end: 20220419

REACTIONS (3)
  - Thrombocytopenia [Unknown]
  - Microcytic anaemia [Unknown]
  - Condition aggravated [Unknown]
